FAERS Safety Report 13988377 (Version 1)
Quarter: 2017Q3

REPORT INFORMATION
  Report Type: Spontaneous
  Country: US (occurrence: US)
  Receive Date: 20170919
  Receipt Date: 20170919
  Transmission Date: 20171128
  Serious: Yes (Other)
  Sender: FDA-Public Use
  Company Number: US-JNJFOC-20170907817

PATIENT
  Weight: 1.48 kg

DRUGS (1)
  1. TOPIRAMATE. [Suspect]
     Active Substance: TOPIRAMATE
     Indication: INFANTILE SPASMS
     Route: 048

REACTIONS (5)
  - Epilepsy [Unknown]
  - Product use issue [Unknown]
  - Product use in unapproved indication [Unknown]
  - Infantile spasms [Unknown]
  - Off label use [Unknown]
